FAERS Safety Report 6534566-2 (Version None)
Quarter: 2010Q1

REPORT INFORMATION
  Report Type: 
  Country: None (occurrence: None)
  Receive Date: 20100112
  Receipt Date: 20100108
  Transmission Date: 20100710
  Serious: Yes (Congenital Anomaly)
  Sender: FDA-Public Use
  Company Number: A0680658A

PATIENT
  Sex: Male

DRUGS (2)
  1. PAXIL [Suspect]
     Indication: DRUG USE FOR UNKNOWN INDICATION
     Dosage: 20MG PER DAY
     Dates: start: 20010818, end: 20020501
  2. VITAMIN TAB [Concomitant]

REACTIONS (8)
  - CONGENITAL ANOMALY [None]
  - DRUG EXPOSURE DURING PREGNANCY [None]
  - LUNG DISORDER [None]
  - MULTIPLE CONGENITAL ABNORMALITIES [None]
  - PNEUMONIA [None]
  - PREMATURE BABY [None]
  - RESPIRATORY DISTRESS [None]
  - TACHYPNOEA [None]
